FAERS Safety Report 7655216-8 (Version None)
Quarter: 2011Q3

REPORT INFORMATION
  Report Type: 
  Country: None (occurrence: None)
  Receive Date: 20110804
  Receipt Date: 20110725
  Transmission Date: 20111222
  Serious: Yes (Other)
  Sender: FDA-Public Use
  Company Number: US-JNJFOC-20110711240

PATIENT
  Age: 94 Year
  Sex: Female

DRUGS (3)
  1. CLARITIN [Interacting]
     Indication: PRODUCT USED FOR UNKNOWN INDICATION
     Route: 065
     Dates: start: 20110714
  2. TYLENOL-500 [Suspect]
     Indication: PRODUCT USED FOR UNKNOWN INDICATION
     Route: 065
  3. TYLENOL-500 [Suspect]
     Route: 065

REACTIONS (2)
  - DRUG INTERACTION [None]
  - HALLUCINATION [None]
